FAERS Safety Report 9193671 (Version 1)
Quarter: 2013Q1

REPORT INFORMATION
  Report Type: Spontaneous
  Country: US (occurrence: None)
  Receive Date: 20130325
  Receipt Date: 20130325
  Transmission Date: 20140127
  Serious: Yes (Hospitalization)
  Sender: FDA-Public Use
  Company Number: None

PATIENT
  Age: 57 Year
  Sex: 0
  Weight: 90.72 kg

DRUGS (1)
  1. BACLOFEN [Suspect]
     Dates: start: 20130318, end: 20130321

REACTIONS (2)
  - Product label on wrong product [None]
  - Circumstance or information capable of leading to medication error [None]
